FAERS Safety Report 25725169 (Version 2)
Quarter: 2025Q4

REPORT INFORMATION
  Report Type: Spontaneous
  Country: US (occurrence: US)
  Receive Date: 20250826
  Receipt Date: 20251120
  Transmission Date: 20260117
  Serious: No
  Sender: AMNEAL
  Company Number: US-AMNEAL PHARMACEUTICALS-2025-AMRX-03044

PATIENT

DRUGS (2)
  1. CREXONT [Suspect]
     Active Substance: CARBIDOPA\LEVODOPA
     Indication: Parkinson^s disease
     Dosage: (70/280 MG) 02 CAPSULES, 3X/DAY
     Route: 048
     Dates: start: 20250419, end: 20250620
  2. CREXONT [Suspect]
     Active Substance: CARBIDOPA\LEVODOPA
     Dosage: (70/280 MG) 1 CAPSULES, 3X/DAY
     Route: 048
     Dates: start: 20250620

REACTIONS (16)
  - Fatigue [Recovered/Resolved]
  - Speech disorder [Recovered/Resolved]
  - Weight decreased [Recovered/Resolved]
  - Appetite disorder [Recovered/Resolved]
  - Mental disorder [Recovered/Resolved]
  - Abnormal dreams [Recovered/Resolved]
  - Dry mouth [Recovered/Resolved]
  - Dyspnoea [Recovered/Resolved]
  - Restlessness [Recovered/Resolved]
  - Abdominal distension [Recovered/Resolved]
  - Feeling drunk [Recovered/Resolved]
  - Dyskinesia [Recovered/Resolved]
  - Dizziness [Recovered/Resolved]
  - Insomnia [Recovered/Resolved]
  - Somnolence [Recovered/Resolved]
  - Constipation [Recovered/Resolved]

NARRATIVE: CASE EVENT DATE: 20250419
